FAERS Safety Report 20877906 (Version 1)
Quarter: 2022Q2

REPORT INFORMATION
  Report Type: Spontaneous
  Country: US (occurrence: None)
  Receive Date: 20220526
  Receipt Date: 20220526
  Transmission Date: 20220721
  Serious: No
  Sender: FDA-Public Use
  Company Number: None

PATIENT
  Age: 57 Year
  Sex: Male

DRUGS (1)
  1. ABIRATERONE [Suspect]
     Active Substance: ABIRATERONE
     Dosage: FREQUENCY : DAILY;?
     Route: 048

REACTIONS (7)
  - Therapy interrupted [None]
  - Hot flush [None]
  - Gastrooesophageal reflux disease [None]
  - Dizziness [None]
  - Asthenia [None]
  - Insomnia [None]
  - Cardiac flutter [None]

NARRATIVE: CASE EVENT DATE: 20220520
